FAERS Safety Report 8270963-5 (Version None)
Quarter: 2012Q2

REPORT INFORMATION
  Report Type: 
  Country: None (occurrence: None)
  Receive Date: 20120410
  Receipt Date: 20120328
  Transmission Date: 20120825
  Serious: Yes (Death)
  Sender: FDA-Public Use
  Company Number: US-ROCHE-1054343

PATIENT
  Sex: Female
  Weight: 84.898 kg

DRUGS (4)
  1. ABRAXANE [Concomitant]
  2. VINORELBINE [Concomitant]
  3. XELODA [Suspect]
     Indication: PRODUCT USED FOR UNKNOWN INDICATION
  4. HERCEPTIN [Suspect]
     Indication: BREAST CANCER FEMALE
     Route: 042
     Dates: start: 20060815

REACTIONS (1)
  - DEATH [None]
